FAERS Safety Report 7371909-4 (Version None)
Quarter: 2011Q1

REPORT INFORMATION
  Report Type: 
  Country: None (occurrence: None)
  Receive Date: 20110324
  Receipt Date: 20110317
  Transmission Date: 20110831
  Serious: Yes (Hospitalization)
  Sender: FDA-Public Use
  Company Number: US-SANOFI-AVENTIS-2011SA012336

PATIENT
  Age: 47 Year
  Sex: Female
  Weight: 59 kg

DRUGS (2)
  1. NOVOLOG [Suspect]
     Dosage: AS PER SLIDING SCALE WITH MEALS
     Route: 058
  2. LANTUS [Suspect]
     Dosage: DOSE:18 UNIT(S)
     Route: 058

REACTIONS (6)
  - GASTROINTESTINAL DISORDER [None]
  - DIABETIC KETOACIDOSIS [None]
  - VOMITING [None]
  - PHARYNGITIS STREPTOCOCCAL [None]
  - NAUSEA [None]
  - BLOOD GLUCOSE INCREASED [None]
